FAERS Safety Report 13901933 (Version 1)
Quarter: 2017Q3

REPORT INFORMATION
  Report Type: Spontaneous
  Country: US (occurrence: US)
  Receive Date: 20170824
  Receipt Date: 20170824
  Transmission Date: 20171127
  Serious: No
  Sender: FDA-Public Use
  Company Number: US-ROCHE-1124947

PATIENT

DRUGS (5)
  1. HERCEPTIN [Suspect]
     Active Substance: TRASTUZUMAB
     Indication: LUNG NEOPLASM MALIGNANT
     Dosage: 180MG IN 250 CC NORMAL SALINE
     Route: 065
     Dates: start: 19990826
  2. ANZEMET [Concomitant]
     Active Substance: DOLASETRON MESYLATE
  3. CARBO ACTIVATUS [Concomitant]
     Dosage: 100 MG IN 250 CC NS
     Route: 065
  4. AREDIA [Concomitant]
     Active Substance: PAMIDRONATE DISODIUM
  5. HERCEPTIN [Suspect]
     Active Substance: TRASTUZUMAB
     Indication: BREAST CANCER
     Route: 065
     Dates: start: 19981223

REACTIONS (5)
  - Decreased appetite [Unknown]
  - Back pain [Unknown]
  - Fatigue [Unknown]
  - Influenza [Unknown]
  - Nausea [Unknown]
